FAERS Safety Report 7717561-7 (Version None)
Quarter: 2011Q3

REPORT INFORMATION
  Report Type: 
  Country: None (occurrence: None)
  Receive Date: 20110824
  Receipt Date: 20110810
  Transmission Date: 20111222
  Serious: Yes (Death)
  Sender: FDA-Public Use
  Company Number: UTC-009403

PATIENT
  Age: 51 Year
  Sex: Male

DRUGS (5)
  1. COUMADIN [Concomitant]
  2. REVATIO [Concomitant]
  3. TRACLEER [Concomitant]
  4. DIURETICS (DIURETICS) [Concomitant]
  5. REMODULIN [Suspect]
     Indication: PULMONARY ARTERIAL HYPERTENSION
     Dosage: 44.64 UG/KG (0.931 UG/KG, 1 IN 1 MIN), SUBCUTANEOUS
     Route: 058
     Dates: start: 20090420

REACTIONS (2)
  - SWELLING [None]
  - FLUID OVERLOAD [None]
